FAERS Safety Report 25267550 (Version 2)
Quarter: 2025Q2

REPORT INFORMATION
  Report Type: Report from Study
  Country: US (occurrence: US)
  Receive Date: 20250505
  Receipt Date: 20250527
  Transmission Date: 20250717
  Serious: Yes (Other)
  Sender: ACADIA PHARMACEUTICALS
  Company Number: US-ACADIA PHARMACEUTICALS INC.-ACA-2025-PIM-004951

PATIENT
  Sex: Male

DRUGS (21)
  1. NUPLAZID [Suspect]
     Active Substance: PIMAVANSERIN TARTRATE
     Indication: Parkinson^s disease psychosis
     Dosage: 34 MILLIGRAM, QD
     Route: 048
  2. ASPIRIN [Concomitant]
     Active Substance: ASPIRIN
  3. BUPROPION HYDROCHLORIDE [Concomitant]
     Active Substance: BUPROPION HYDROCHLORIDE
  4. CETIRIZINE HCL [Concomitant]
     Active Substance: CETIRIZINE HYDROCHLORIDE
  5. COENZYME Q10 [Concomitant]
     Active Substance: DIETARY SUPPLEMENT\UBIDECARENONE
  6. ENTACAPONE [Concomitant]
     Active Substance: ENTACAPONE
  7. EZETIMIBE [Concomitant]
     Active Substance: EZETIMIBE
  8. FAMOTIDINE [Concomitant]
     Active Substance: FAMOTIDINE
  9. FUROSEMIDE [Concomitant]
     Active Substance: FUROSEMIDE
  10. HYDROXYZINE [Concomitant]
     Active Substance: HYDROXYZINE HYDROCHLORIDE
  11. MIRTAZAPINE [Concomitant]
     Active Substance: MIRTAZAPINE
  12. PANTOPRAZOLE [Concomitant]
     Active Substance: PANTOPRAZOLE
  13. POTASSIUM CHLORIDE [Concomitant]
     Active Substance: POTASSIUM CHLORIDE
  14. TYLENOL 8HR [Concomitant]
     Active Substance: ACETAMINOPHEN
  15. VITAMIN B12 [Concomitant]
     Active Substance: CYANOCOBALAMIN
  16. ATORVASTATIN [Concomitant]
     Active Substance: ATORVASTATIN
  17. CARBIDOPA\LEVODOPA [Concomitant]
     Active Substance: CARBIDOPA\LEVODOPA
  18. CYCLOBENZAPRINE [Concomitant]
     Active Substance: CYCLOBENZAPRINE
  19. GABAPENTIN [Concomitant]
     Active Substance: GABAPENTIN
  20. LEVOTHYROXINE [Concomitant]
     Active Substance: LEVOTHYROXINE
  21. METOPROLOL SUCCINATE [Concomitant]
     Active Substance: METOPROLOL SUCCINATE

REACTIONS (5)
  - Hallucinations, mixed [Not Recovered/Not Resolved]
  - Sleep disorder [Not Recovered/Not Resolved]
  - Alopecia [Not Recovered/Not Resolved]
  - Constipation [Not Recovered/Not Resolved]
  - Peripheral swelling [Not Recovered/Not Resolved]
